FAERS Safety Report 5581773-1 (Version None)
Quarter: 2008Q1

REPORT INFORMATION
  Report Type: 
  Country: None (occurrence: None)
  Receive Date: 20080104
  Receipt Date: 20071221
  Transmission Date: 20080703
  Serious: Yes (Hospitalization, Other)
  Sender: FDA-Public Use
  Company Number: DE-MERCK-0311DEU00142B1

PATIENT
  Sex: Female
  Weight: 1 kg

DRUGS (3)
  1. COZAAR [Suspect]
     Indication: HYPERTENSION
     Route: 064
  2. HYDROCHLOROTHIAZIDE [Concomitant]
     Indication: HYPERTENSION
     Route: 064
  3. METOPROLOL [Concomitant]
     Indication: HYPERTENSION
     Route: 064

REACTIONS (4)
  - APNOEA [None]
  - FOETAL GROWTH RETARDATION [None]
  - PREMATURE BABY [None]
  - RESPIRATORY DISTRESS [None]
